FAERS Safety Report 25198426 (Version 1)
Quarter: 2025Q2

REPORT INFORMATION
  Report Type: Spontaneous
  Country: US (occurrence: US)
  Receive Date: 20250415
  Receipt Date: 20250415
  Transmission Date: 20250717
  Serious: No
  Sender: BRACCO
  Company Number: US-BRACCO-2025US00130

PATIENT
  Age: 61 Year
  Sex: Female

DRUGS (14)
  1. VUEWAY [Suspect]
     Active Substance: GADOPICLENOL
     Indication: Magnetic resonance imaging breast
     Route: 042
     Dates: start: 20241223, end: 20241223
  2. ACETAMINOPHEN\HYDROCODONE [Concomitant]
     Active Substance: ACETAMINOPHEN\HYDROCODONE
  3. BENZONATATE [Concomitant]
     Active Substance: BENZONATATE
  4. BUMETANIDE [Concomitant]
     Active Substance: BUMETANIDE
  5. DAPSONE [Concomitant]
     Active Substance: DAPSONE
  6. HYDROXYCHLOROQUINE [Concomitant]
     Active Substance: HYDROXYCHLOROQUINE
  7. LEVOMEFOLIC ACID [Concomitant]
     Active Substance: LEVOMEFOLIC ACID
  8. MELOXICAM [Concomitant]
     Active Substance: MELOXICAM
  9. NALTREXONE [Concomitant]
     Active Substance: NALTREXONE
  10. OMEPRAZOLE [Concomitant]
     Active Substance: OMEPRAZOLE
  11. ONDANSETRON [Concomitant]
     Active Substance: ONDANSETRON
  12. ORPHENADRINE [Concomitant]
     Active Substance: ORPHENADRINE
  13. PROMETHAZINE [Concomitant]
     Active Substance: PROMETHAZINE HYDROCHLORIDE
  14. TIZANIDINE [Concomitant]
     Active Substance: TIZANIDINE

REACTIONS (1)
  - Urticaria [Recovered/Resolved]

NARRATIVE: CASE EVENT DATE: 20241223
